FAERS Safety Report 9834469 (Version 1)
Quarter: 2014Q1

REPORT INFORMATION
  Report Type: Report from Study
  Country: US (occurrence: US)
  Receive Date: 20140122
  Receipt Date: 20140122
  Transmission Date: 20141002
  Serious: Yes (Other)
  Sender: FDA-Public Use
  Company Number: US-ROCHE-1334938

PATIENT
  Sex: 0

DRUGS (1)
  1. AVASTIN [Suspect]
     Indication: RETINAL VEIN OCCLUSION
     Route: 050

REACTIONS (4)
  - Macular oedema [Unknown]
  - Retinal degeneration [Unknown]
  - Ophthalmological examination abnormal [Unknown]
  - Retinal tear [Unknown]
